FAERS Safety Report 4553474-X (Version None)
Quarter: 2005Q1

REPORT INFORMATION
  Report Type: 
  Country: None (occurrence: None)
  Receive Date: 20050112
  Receipt Date: 20041222
  Transmission Date: 20050727
  Serious: Yes (Other)
  Sender: FDA-Public Use
  Company Number: GBS041115879

PATIENT
  Sex: Male

DRUGS (4)
  1. OLANZAPINE [Suspect]
     Indication: PROPHYLAXIS
     Dosage: 10 MG AT BEDTIME
     Dates: start: 20040809
  2. OLANZAPINE [Suspect]
     Indication: PSYCHOTIC DISORDER
     Dosage: 10 MG AT BEDTIME
     Dates: start: 20040809
  3. LITHIUM CARBONATE [Concomitant]
  4. IRON [Concomitant]

REACTIONS (2)
  - DRUG EXPOSURE DURING PREGNANCY [None]
  - FOETAL DISTRESS SYNDROME [None]
